FAERS Safety Report 9521299 (Version 1)
Quarter: 2013Q1

REPORT INFORMATION
  Report Type: Spontaneous
  Country: US (occurrence: None)
  Receive Date: 20130305
  Receipt Date: 20130305
  Transmission Date: 20140127
  Serious: Yes (Hospitalization)
  Sender: FDA-Public Use
  Company Number: 163-21880-12072064

PATIENT
  Age: 56 Year
  Sex: Male

DRUGS (7)
  1. REVLIMID [Suspect]
     Indication: PLASMA CELL MYELOMA
     Dosage: 1 IN 1 D
     Route: 048
     Dates: start: 20101030
  2. NORVASC (AMLODIPINE BESILATE) (UNKNOWN) [Concomitant]
  3. RAMIPRIL (RAMIPRIL) (UNKNOWN) [Concomitant]
  4. PROTONIX (UNKNOWN) [Concomitant]
  5. NEURONTIN (GABAPENTIN) (UNKNOWN) [Concomitant]
  6. ASA (ACETYSALICYLIC ACID) (UNKNOWN) [Concomitant]
  7. ZOMETA (ZOLEDRONIC ACID) (UNKNOWN) [Concomitant]

REACTIONS (2)
  - Herpes zoster [None]
  - Neutropenia [None]
